FAERS Safety Report 4809002-4 (Version None)
Quarter: 2005Q4

REPORT INFORMATION
  Report Type: 
  Country: None (occurrence: None)
  Receive Date: 20051025
  Receipt Date: 20051018
  Transmission Date: 20060501
  Serious: Yes (Hospitalization)
  Sender: FDA-Public Use
  Company Number: DE-BRISTOL-MYERS SQUIBB COMPANY-13149414

PATIENT
  Age: 62 Year
  Sex: Female

DRUGS (5)
  1. CYCLOPHOSPHAMIDE [Suspect]
     Indication: BREAST CANCER
     Route: 042
     Dates: start: 20050922, end: 20050922
  2. TAXOL [Suspect]
     Indication: BREAST CANCER
     Route: 042
     Dates: start: 20050908, end: 20050908
  3. EPIRUBICIN [Suspect]
     Indication: BREAST CANCER
     Route: 042
     Dates: start: 20050721, end: 20050721
  4. NEULASTA [Concomitant]
     Route: 058
     Dates: start: 20050923, end: 20050923
  5. EPOETIN BETA [Concomitant]
     Route: 058
     Dates: start: 20050922, end: 20050922

REACTIONS (2)
  - FALL [None]
  - JOINT RANGE OF MOTION DECREASED [None]
